FAERS Safety Report 8529446-7 (Version None)
Quarter: 2012Q3

REPORT INFORMATION
  Report Type: 
  Country: None (occurrence: None)
  Receive Date: 20120723
  Receipt Date: 20120713
  Transmission Date: 20120928
  Serious: Yes (Hospitalization)
  Sender: FDA-Public Use
  Company Number: US-BAYER-2012-071641

PATIENT
  Age: 45 Year
  Sex: Female
  Weight: 87.075 kg

DRUGS (15)
  1. VITAMIN D [Concomitant]
     Dosage: 1000 IU, TAKE 2 DAILY
     Route: 048
  2. VITAMIN B-12 [Concomitant]
     Dosage: 2500 MCG/24HR, UNK
     Route: 048
  3. FISH OIL [Concomitant]
     Dosage: 1000 MG,TAKE 2 DAILY
     Route: 048
  4. DROSPIRENONE AND ETHINYL ESTRADIOL [Suspect]
  5. ASCORBIC ACID [Concomitant]
     Dosage: 500 MG,TAKE 2DAILY
     Route: 048
  6. YASMIN [Suspect]
  7. LOVASTATIN [Concomitant]
     Dosage: 20 MG, EVERY EVENING
     Route: 048
  8. CALTRATE + D [Concomitant]
     Dosage: 600MG-200IU DAILY
     Route: 048
  9. CICLESONIDE [Concomitant]
  10. CLARITIN [Concomitant]
     Dosage: 10 MG/24HR, UNK
  11. TYLENOL [Concomitant]
  12. POTASSIUM CHLORIDE [Concomitant]
     Dosage: 99 MG, DAILY
     Route: 048
  13. ASPIRIN [Concomitant]
     Dosage: 81 MG/24HR, UNK
     Route: 048
  14. HYDROCHLOROTHIAZIDE [Concomitant]
     Dosage: 25 MG/24HR, UNK
     Route: 048
  15. MULTI-VITAMINS [Concomitant]
     Dosage: DAILY
     Route: 048

REACTIONS (1)
  - DEEP VEIN THROMBOSIS [None]
